FAERS Safety Report 6596656-8 (Version None)
Quarter: 2010Q1

REPORT INFORMATION
  Report Type: 
  Country: None (occurrence: None)
  Receive Date: 20100223
  Receipt Date: 20100215
  Transmission Date: 20100710
  Serious: Yes (Death)
  Sender: FDA-Public Use
  Company Number: FR-WYE-H13650510

PATIENT
  Age: 59 Year
  Sex: Female

DRUGS (10)
  1. CORDARONE [Suspect]
     Route: 048
  2. GEMZAR [Concomitant]
     Indication: METASTASIS
     Dosage: NOT PROVIDED
     Dates: start: 20091101
  3. LASILIX [Suspect]
     Route: 048
  4. FLECAINIDE ACETATE [Suspect]
     Route: 048
  5. TAHOR [Suspect]
     Route: 048
  6. ATARAX [Suspect]
     Route: 048
     Dates: start: 20100111, end: 20100115
  7. LEVOTHYROX [Suspect]
     Indication: HYPOTHYROIDISM
     Route: 048
  8. TOPALGIC [Suspect]
     Route: 048
     Dates: start: 20100111, end: 20100116
  9. NAVELBINE [Suspect]
     Indication: ADENOCARCINOMA
     Dosage: GIVEN MONTHLY, DOSE NOT PROVIDED
     Route: 042
     Dates: start: 20091124, end: 20091124
  10. NAVELBINE [Suspect]
     Dosage: GIVEN MONTHLY, DOSE NOT PROVIDED
     Route: 042
     Dates: start: 20091221, end: 20091221

REACTIONS (4)
  - INTESTINAL OBSTRUCTION [None]
  - METASTASES TO LIVER [None]
  - NEOPLASM PROGRESSION [None]
  - OVARIAN NEOPLASM [None]
